FAERS Safety Report 9249830 (Version 2)
Quarter: 2013Q2

REPORT INFORMATION
  Report Type: Report from Study
  Country: DE (occurrence: DE)
  Receive Date: 20130423
  Receipt Date: 20130507
  Transmission Date: 20140414
  Serious: Yes (Hospitalization, Other)
  Sender: FDA-Public Use
  Company Number: PHHY2012DE118154

PATIENT
  Sex: Female

DRUGS (8)
  1. AFINITOR [Suspect]
     Indication: METASTATIC RENAL CELL CARCINOMA
     Dosage: 10 MG, UNK
     Route: 048
     Dates: start: 20121120, end: 20121207
  2. AFINITOR [Suspect]
     Dosage: 5 MG, QD
     Route: 048
     Dates: start: 20121228, end: 20130407
  3. AMLODIPINE [Concomitant]
     Indication: HYPERTENSION
     Dosage: 5 MG
     Dates: start: 1992
  4. ISOKET [Concomitant]
     Indication: HYPERTENSION
     Dosage: 20 MG
     Dates: start: 1992
  5. TOREM [Concomitant]
     Dosage: 10 MG, UNK
  6. CARVEDILOL [Concomitant]
     Dosage: 6.25 MG
  7. CAPTOPRIL [Concomitant]
     Dosage: 12.5 MG
  8. MONO EMBOLEX [Concomitant]
     Dosage: 3000 IU

REACTIONS (4)
  - Cardiac failure [Recovering/Resolving]
  - Thrombocytopenia [Recovering/Resolving]
  - Leukopenia [Not Recovered/Not Resolved]
  - Epistaxis [Not Recovered/Not Resolved]
